FAERS Safety Report 9515528 (Version 5)
Quarter: 2013Q4

REPORT INFORMATION
  Report Type: Spontaneous
  Country: GB (occurrence: GB)
  Receive Date: 20130911
  Receipt Date: 20131113
  Transmission Date: 20140711
  Serious: Yes (Death)
  Sender: FDA-Public Use
  Company Number: PHFR2013GB005154

PATIENT
  Age: 61 Year
  Sex: Female
  Weight: 51.5 kg

DRUGS (10)
  1. CLOZARIL [Suspect]
     Indication: SCHIZOPHRENIA
     Dosage: 200 MG DAILY
     Route: 048
     Dates: start: 20110417
  2. ALENDRONIC ACID [Concomitant]
     Dosage: 70 MG, (ONE TO BE TAKEN ON SAME DAY EACH WEEKLY)
     Route: 048
  3. METFORMIN [Concomitant]
     Indication: DIABETES MELLITUS
     Dosage: 1 DF, TID
     Route: 048
  4. TRAMADOL [Concomitant]
     Indication: PAIN
     Dosage: 50-100 MG HS TO QDS
     Route: 048
  5. TRAMADOL [Concomitant]
     Dosage: 50 MG, (ONE OR TWO TOBE TAKEN EVERY FOUR HOUR WHEN NECESSARY. MAXIMUM 8 CAPSULE IN 24 HOURS)
  6. ATORVASTATIN [Concomitant]
     Indication: BLOOD CHOLESTEROL INCREASED
     Dosage: 1 DF, (40 MG NOCTE)
     Route: 048
  7. AMISULPRIDE [Concomitant]
     Indication: SCHIZOPHRENIA
     Dosage: 1 DF, TID (1 MANE AND 2 NOCTE)
     Route: 048
  8. ADCAL-D3 [Concomitant]
     Dosage: 1 DF, BID ((ONE TO BE TAKEN TWICE A DAY))
     Route: 048
  9. LETROZOLE [Concomitant]
     Dosage: 1 DF, UNK
     Route: 048
  10. PARACETAMOL [Concomitant]
     Dosage: 500 MG, (ONE OR TWO TAKEN EVERY FOUR TO SIX HOURS WHEN NECESSARY)
     Route: 048

REACTIONS (1)
  - Sudden death [Fatal]
